FAERS Safety Report 8977859 (Version 3)
Quarter: 2013Q1

REPORT INFORMATION
  Report Type: Report from Study
  Country: TW (occurrence: TW)
  Receive Date: 20121219
  Receipt Date: 20130115
  Transmission Date: 20140127
  Serious: Yes (Hospitalization)
  Sender: FDA-Public Use
  Company Number: TW-CELGENEUS-153-21880-12072735

PATIENT
  Age: 66 Year
  Sex: Male
  Weight: 69.5 kg

DRUGS (37)
  1. REVLIMID [Suspect]
     Indication: PLASMA CELL MYELOMA
     Dosage: 5 MILLIGRAM
     Route: 048
     Dates: start: 20110531, end: 20120529
  2. REVLIMID [Suspect]
     Dosage: 5 MILLIGRAM
     Route: 048
     Dates: start: 20120710, end: 20120717
  3. VALTREX [Concomitant]
     Indication: HERPES SIMPLEX
     Dosage: 1500 MILLIGRAM
     Route: 048
     Dates: start: 20110531
  4. VALTREX [Concomitant]
     Dosage: 1000 MILLIGRAM
     Route: 048
     Dates: start: 20120721, end: 20120723
  5. BONEFOS [Concomitant]
     Indication: PLASMA CELL MYELOMA
     Dosage: 800 MILLIGRAM
     Route: 048
     Dates: start: 20110531
  6. BONEFOS [Concomitant]
     Dosage: 800 MILLIGRAM
     Route: 048
     Dates: start: 20120721, end: 20120723
  7. ACERTIL [Concomitant]
     Indication: HYPERTENSION
     Dosage: 5 MILLIGRAM
     Route: 048
     Dates: start: 20110531
  8. ACERTIL [Concomitant]
     Dosage: 1 TABLET
     Route: 048
     Dates: start: 20120721, end: 20120723
  9. AMARYL [Concomitant]
     Indication: DIABETES MELLITUS
     Dosage: 1 MILLIGRAM
     Route: 048
     Dates: start: 20111101
  10. AMARYL [Concomitant]
     Dosage: 2 MILLIGRAM
     Route: 048
     Dates: start: 20120721, end: 20120722
  11. AMARYL [Concomitant]
     Dosage: 2 MG
     Route: 048
     Dates: start: 20120722, end: 20120723
  12. STROCAIN [Concomitant]
     Indication: PROPHYLAXIS
     Dosage: 3 TABLET
     Route: 048
     Dates: start: 20111213
  13. STROCAIN [Concomitant]
     Dosage: 3 TABLET
     Route: 048
     Dates: start: 20120721, end: 20120728
  14. ANZEPAM [Concomitant]
     Indication: INSOMNIA
     Route: 048
     Dates: start: 20120207
  15. ANZEPAM [Concomitant]
     Dosage: 0.5 M
     Route: 048
     Dates: start: 20120721, end: 20120804
  16. ROSIS [Concomitant]
     Indication: OEDEMA
     Dosage: 40 MILLIGRAM
     Route: 048
     Dates: start: 20120710
  17. ROSIS [Concomitant]
     Dosage: 40 MILLIGRAM
     Route: 048
     Dates: start: 20120721, end: 20120721
  18. MEPTIN-MINI [Concomitant]
     Indication: ASTHMA
     Dosage: 25 MICROGRAM
     Route: 048
     Dates: start: 20120710
  19. MEPTIN-MINI [Concomitant]
     Dosage: 1 TABLET
     Route: 048
     Dates: start: 20120721, end: 20120727
  20. ASPIRINE [Concomitant]
     Indication: THROMBOSIS PROPHYLAXIS
     Dosage: 100 MILLIGRAM
     Route: 048
     Dates: start: 20120710
  21. ASPIRINE [Concomitant]
     Dosage: 1 TABLET
     Route: 048
     Dates: start: 20120721, end: 20120727
  22. SPIRONOLACTONE [Concomitant]
     Indication: OEDEMA
     Dosage: 25 MILLIGRAM
     Route: 048
     Dates: start: 20120710
  23. SPIRONOLACTONE [Concomitant]
     Dosage: 1 TABLET
     Route: 048
     Dates: start: 20120721, end: 20120721
  24. ALLERMIN [Concomitant]
     Indication: PROPHYLAXIS
     Route: 065
     Dates: start: 20120710
  25. ALLERMIN [Concomitant]
     Route: 041
     Dates: start: 20120721, end: 20120722
  26. ALLERMIN [Concomitant]
     Dosage: 5MG/ML
     Route: 041
     Dates: start: 20120722, end: 20120723
  27. ALLERMIN [Concomitant]
     Dosage: 5MG/ML
     Route: 041
     Dates: start: 20120726, end: 20120727
  28. ALLERMIN [Concomitant]
     Dosage: 5MG/ML
     Route: 041
     Dates: start: 20120730, end: 20120731
  29. ALLERMIN [Concomitant]
     Dosage: 5MG/ML
     Route: 041
     Dates: start: 20120803, end: 20120805
  30. DECADRON [Concomitant]
     Indication: PROPHYLAXIS
     Route: 065
     Dates: start: 20120710
  31. DECADRON [Concomitant]
     Route: 041
     Dates: start: 20120803, end: 20120804
  32. DECADRON [Concomitant]
     Dosage: 20 MILLIGRAM
     Route: 041
     Dates: start: 20120803, end: 20120808
  33. LASIX [Concomitant]
     Indication: OEDEMA
     Route: 065
     Dates: start: 20120710
  34. LASIX [Concomitant]
     Dosage: 20 MG/2ML
     Route: 041
     Dates: start: 20120726, end: 20120727
  35. LASIX [Concomitant]
     Dosage: 20 MG/2ML
     Route: 041
     Dates: start: 20120722, end: 20120723
  36. LASIX [Concomitant]
     Dosage: 20 MG/2ML
     Route: 041
     Dates: start: 20120805, end: 20120805
  37. BLOOD [Concomitant]
     Indication: PRODUCT USED FOR UNKNOWN INDICATION
     Route: 065
     Dates: start: 20120717

REACTIONS (3)
  - Duodenal ulcer [Not Recovered/Not Resolved]
  - Gastritis haemorrhagic [Not Recovered/Not Resolved]
  - Renal failure acute [Not Recovered/Not Resolved]
